FAERS Safety Report 14110615 (Version 1)
Quarter: 2017Q4

REPORT INFORMATION
  Report Type: Report from Study
  Country: CA (occurrence: CA)
  Receive Date: 20171020
  Receipt Date: 20171020
  Transmission Date: 20180321
  Serious: Yes (Hospitalization)
  Sender: FDA-Public Use
  Company Number: PHHY2017CA151611

PATIENT
  Sex: Female

DRUGS (1)
  1. SANDOSTATIN LAR DEPOT [Suspect]
     Active Substance: OCTREOTIDE ACETATE
     Indication: CARCINOID SYNDROME
     Dosage: 40 MG, QMO
     Route: 030
     Dates: start: 20090512

REACTIONS (5)
  - Nephrolithiasis [Unknown]
  - Renal neoplasm [Unknown]
  - Needle issue [Unknown]
  - Renal artery stenosis [Unknown]
  - Blood pressure increased [Unknown]

NARRATIVE: CASE EVENT DATE: 2017
